FAERS Safety Report 15147652 (Version 3)
Quarter: 2018Q4

REPORT INFORMATION
  Report Type: Spontaneous
  Country: US (occurrence: US)
  Receive Date: 20180716
  Receipt Date: 20181102
  Transmission Date: 20190204
  Serious: No
  Sender: FDA-Public Use
  Company Number: US-PFIZER INC-2018284122

PATIENT
  Age: 58 Year
  Sex: Female
  Weight: 94.8 kg

DRUGS (1)
  1. GABAPENTIN. [Suspect]
     Active Substance: GABAPENTIN
     Indication: FIBROMYALGIA
     Dosage: 600 MG, 3X/DAY(300MG CAPSULES-2 CAPSULES TAKEN BY MOUTH THREE TIMES DAILY)
     Route: 048

REACTIONS (1)
  - Drug ineffective for unapproved indication [Unknown]
